FAERS Safety Report 15721831 (Version 5)
Quarter: 2019Q1

REPORT INFORMATION
  Report Type: Spontaneous
  Country: US (occurrence: US)
  Receive Date: 20181214
  Receipt Date: 20190207
  Transmission Date: 20190417
  Serious: No
  Sender: FDA-Public Use
  Company Number: US-PFIZER INC-2016365455

PATIENT
  Age: 61 Year
  Sex: Male
  Weight: 99 kg

DRUGS (15)
  1. VIAGRA [Concomitant]
     Active Substance: SILDENAFIL CITRATE
     Indication: ERECTILE DYSFUNCTION
     Dosage: 100 MG, UNK
     Dates: start: 20181107
  2. CENTRUM PERFORMANCE [ASCORBIC ACID;BETACAROTENE;BIOTIN;CALCIUM;CHROMIU [Concomitant]
     Indication: DIABETIC NEUROPATHY
     Dosage: 1 DF, DAILY
     Dates: start: 20131114
  3. LYRICA [Suspect]
     Active Substance: PREGABALIN
     Indication: DIABETIC NEUROPATHY
     Dosage: 150 MG, TWICE DAILY
     Route: 048
     Dates: start: 20180509, end: 201810
  4. LYRICA [Suspect]
     Active Substance: PREGABALIN
     Indication: TYPE 2 DIABETES MELLITUS
  5. LISINOPRIL AND HYDROCHLOROTHIAZIDE [Concomitant]
     Active Substance: HYDROCHLOROTHIAZIDE\LISINOPRIL
     Indication: HYPERTENSION
     Dosage: 1 DF, DAILY (EVERY MORNING)
     Dates: start: 20160512
  6. VITAMIN D [Concomitant]
     Active Substance: CHOLECALCIFEROL
     Indication: TYPE 2 DIABETES MELLITUS
     Dosage: 400 IU, DAILY
     Dates: start: 20160512
  7. NAPROSYN [Concomitant]
     Active Substance: NAPROXEN
     Indication: TYPE 2 DIABETES MELLITUS
     Dosage: 500 MG, AS NEEDED (TWO TIMES DAILY, AS NEEDED)
     Dates: start: 20160512
  8. TYLENOL 8HR [Concomitant]
     Active Substance: ACETAMINOPHEN
     Indication: DIABETIC NEUROPATHY
     Dosage: 650 MG, AS NEEDED (EVERY EIGHT HOURS, AS NEEDED)
     Dates: start: 20131114
  9. METFORMIN HCL [Concomitant]
     Active Substance: METFORMIN HYDROCHLORIDE
     Indication: TYPE 2 DIABETES MELLITUS
     Dosage: 1000 MG, 2X/DAY
     Dates: start: 20160512
  10. AMLACTIN [Concomitant]
     Active Substance: AMMONIUM LACTATE
     Indication: TYPE 2 DIABETES MELLITUS
     Dosage: UNK, 2X/DAY
     Dates: start: 20160512
  11. CENTRUM SILVER [ASCORBIC ACID;CALCIUM;MINERALS NOS;RETINOL;TOCOPHERYL [Concomitant]
     Indication: DIABETIC NEUROPATHY
     Dosage: 1 DF, DAILY
     Dates: start: 20160512
  12. GLUCOTROL [Concomitant]
     Active Substance: GLIPIZIDE
     Indication: TYPE 2 DIABETES MELLITUS
     Dosage: 10 MG, DAILY
     Dates: start: 20160512
  13. LANTUS [Concomitant]
     Active Substance: INSULIN GLARGINE
     Indication: TYPE 2 DIABETES MELLITUS
     Dosage: 30 IU, 1X/DAY (AT BEDTIME)
     Dates: start: 20131125
  14. LANTUS [Concomitant]
     Active Substance: INSULIN GLARGINE
     Dosage: 40 IU, 1X/DAY (EVERY NIGHT)
     Dates: start: 20160512
  15. LEVEMIR [Concomitant]
     Active Substance: INSULIN DETEMIR
     Indication: TYPE 2 DIABETES MELLITUS
     Dosage: 40 IU, 1X/DAY (AT BEDTIME)
     Dates: start: 20121126

REACTIONS (2)
  - Arthropathy [Unknown]
  - Product use issue [Unknown]

NARRATIVE: CASE EVENT DATE: 20180509
